FAERS Safety Report 8762655 (Version 1)
Quarter: 2012Q4

REPORT INFORMATION
  Report Type: 
  Country: US (occurrence: US)
  Receive Date: 20120830
  Receipt Date: 20120830
  Transmission Date: 20130627
  Serious: No
  Sender: FDA-Public Use
  Company Number: US-PFIZER INC-2012212851

PATIENT
  Age: 25 Year
  Sex: Male
  Weight: 86.17 kg

DRUGS (4)
  1. CHANTIX [Suspect]
     Indication: SMOKING CESSATION THERAPY
     Dosage: 0.5 mg, Daily
     Dates: start: 20120620, end: 2012
  2. CHANTIX [Suspect]
     Dosage: 1 mg, 2x/day
     Dates: start: 2012
  3. OMEGA 3 [Concomitant]
     Indication: NERVOUS SYSTEM DISORDER
     Dosage: 50 mg, daily
     Dates: start: 2011
  4. MULTIVITAMINS [Concomitant]
     Indication: SUPPLEMENTATION THERAPY
     Dosage: UNK, daily

REACTIONS (1)
  - Abdominal pain upper [Recovering/Resolving]
